FAERS Safety Report 4294823-X (Version None)
Quarter: 2004Q1

REPORT INFORMATION
  Report Type: 
  Country: None (occurrence: None)
  Receive Date: 20040216
  Receipt Date: 20030113
  Transmission Date: 20041129
  Serious: Yes (Hospitalization, Other)
  Sender: FDA-Public Use
  Company Number: US-GLAXOSMITHKLINE-A0392132A

PATIENT
  Age: 32 Year
  Sex: Female
  Weight: 50 kg

DRUGS (5)
  1. LAMICTAL [Suspect]
     Dosage: 50MG TWICE PER DAY
     Route: 048
     Dates: start: 20021219, end: 20030109
  2. WELLBUTRIN [Concomitant]
     Indication: DEPRESSION
     Dosage: 200MG PER DAY
     Dates: start: 20020924
  3. EFFEXOR [Concomitant]
     Indication: DEPRESSION
     Dosage: 225MG PER DAY
     Dates: start: 20020924
  4. CLONAZEPAM [Concomitant]
  5. MULTI-VITAMIN [Concomitant]

REACTIONS (9)
  - BLOOD BLISTER [None]
  - DIFFICULTY IN WALKING [None]
  - OEDEMA MUCOSAL [None]
  - OEDEMA PERIPHERAL [None]
  - ORAL MUCOSAL BLISTERING [None]
  - PHARYNGOLARYNGEAL PAIN [None]
  - PRURITUS [None]
  - RASH [None]
  - STEVENS-JOHNSON SYNDROME [None]
